FAERS Safety Report 16644527 (Version 2)
Quarter: 2019Q3

REPORT INFORMATION
  Report Type: Spontaneous
  Country: PL (occurrence: PL)
  Receive Date: 20190729
  Receipt Date: 20190813
  Transmission Date: 20191004
  Serious: Yes (Hospitalization, Other)
  Sender: FDA-Public Use
  Company Number: PL-SA-2019SA199623

PATIENT
  Age: 68 Year
  Sex: Female

DRUGS (2)
  1. INSULIN LISPRO [Suspect]
     Active Substance: INSULIN LISPRO
     Indication: LATENT AUTOIMMUNE DIABETES IN ADULTS
     Dosage: 14-16 UNITS 10 MINUTES BEFORE THE MAIN MEALS
  2. INSULIN GLARGINE [Suspect]
     Active Substance: INSULIN GLARGINE
     Indication: LATENT AUTOIMMUNE DIABETES IN ADULTS
     Dosage: 20 U, QD (AT AROUND 9:00 PM)

REACTIONS (3)
  - Wrong product administered [Unknown]
  - Neuroglycopenia [Unknown]
  - Loss of consciousness [Unknown]
